FAERS Safety Report 8403179-X (Version None)
Quarter: 2012Q2

REPORT INFORMATION
  Report Type: 
  Country: None (occurrence: None)
  Receive Date: 20120601
  Receipt Date: 20120522
  Transmission Date: 20120825
  Serious: Yes (Other)
  Sender: FDA-Public Use
  Company Number: US-JNJFOC-20120518419

PATIENT
  Sex: Female
  Weight: 56.25 kg

DRUGS (4)
  1. LYRICA [Concomitant]
     Indication: FIBROMYALGIA
     Route: 048
     Dates: start: 20080101
  2. REMICADE [Suspect]
     Indication: FIBROMYALGIA
     Route: 042
     Dates: start: 20110101
  3. REMICADE [Suspect]
     Indication: RHEUMATOID ARTHRITIS
     Route: 042
     Dates: start: 20110101
  4. LORTAB [Concomitant]
     Indication: PAIN
     Route: 048
     Dates: start: 20080101

REACTIONS (3)
  - PAIN IN EXTREMITY [None]
  - BASAL CELL CARCINOMA [None]
  - NECK PAIN [None]
